FAERS Safety Report 5141266-2 (Version None)
Quarter: 2006Q4

REPORT INFORMATION
  Report Type: 
  Country: None (occurrence: None)
  Receive Date: 20061101
  Receipt Date: 20061019
  Transmission Date: 20070319
  Serious: Yes (Other)
  Sender: FDA-Public Use
  Company Number: PHBS2006JP16354

PATIENT
  Age: 39 Year
  Sex: Female

DRUGS (1)
  1. LUDIOMIL [Suspect]
     Dosage: 10 MG/DAY
     Route: 048
     Dates: start: 20050201, end: 20050201

REACTIONS (1)
  - ERYTHEMA MULTIFORME [None]
